FAERS Safety Report 15632825 (Version 1)
Quarter: 2018Q4

REPORT INFORMATION
  Report Type: Spontaneous
  Country: US (occurrence: US)
  Receive Date: 20181119
  Receipt Date: 20181119
  Transmission Date: 20190205
  Serious: Yes (Other)
  Sender: FDA-Public Use
  Company Number: US-PFIZER INC-2018469724

PATIENT
  Age: 68 Year
  Sex: Female
  Weight: 70.31 kg

DRUGS (1)
  1. LYRICA [Suspect]
     Active Substance: PREGABALIN
     Indication: DIABETIC NEUROPATHY
     Dosage: 150 MG, 4X/DAY (TWO AT LUNCH AND TWO AT NIGHT)
     Route: 048
     Dates: end: 201810

REACTIONS (7)
  - Overdose [Unknown]
  - Balance disorder [Unknown]
  - Diabetic neuropathy [Not Recovered/Not Resolved]
  - Gait disturbance [Unknown]
  - Condition aggravated [Not Recovered/Not Resolved]
  - Product use issue [Unknown]
  - Follicle centre lymphoma, follicular grade I, II, III stage III [Not Recovered/Not Resolved]

NARRATIVE: CASE EVENT DATE: 201710
